FAERS Safety Report 26125104 (Version 1)
Quarter: 2025Q4

REPORT INFORMATION
  Report Type: Spontaneous
  Country: US (occurrence: None)
  Receive Date: 20251205
  Receipt Date: 20251205
  Transmission Date: 20260118
  Serious: Yes (Hospitalization)
  Sender: ENCUBE ETHICALS PVT. LTD.
  Company Number: US-Encube-002639

PATIENT
  Age: 75 Year
  Sex: Female

DRUGS (2)
  1. FLUOROURACIL [Suspect]
     Active Substance: FLUOROURACIL
     Indication: Anal cancer stage III
     Dosage: INFUSION (OVER 96 H FOR 2 CYCLES)
  2. MITOMYCIN C [Suspect]
     Active Substance: MITOMYCIN
     Indication: Anal cancer stage III
     Dosage: ADMINISTERED OVER 30 MIN

REACTIONS (16)
  - Stomatitis [Recovering/Resolving]
  - Neutropenia [Unknown]
  - Diarrhoea [Unknown]
  - Pallor [Unknown]
  - Asthenia [Unknown]
  - Nausea [Unknown]
  - Vomiting [Unknown]
  - Dyspnoea [Unknown]
  - Malnutrition [Unknown]
  - Off label use [Unknown]
  - Bacteriuria [Unknown]
  - Productive cough [Unknown]
  - Toxicity to various agents [Unknown]
  - Lower respiratory tract infection [Unknown]
  - Urinary tract infection [Unknown]
  - Hypophagia [Unknown]
